FAERS Safety Report 18434923 (Version 1)
Quarter: 2020Q4

REPORT INFORMATION
  Report Type: Spontaneous
  Country: ES (occurrence: ES)
  Receive Date: 20201028
  Receipt Date: 20201028
  Transmission Date: 20210114
  Serious: Yes (Hospitalization, Other)
  Sender: FDA-Public Use
  Company Number: ES-AUROBINDO-AUR-APL-2020-054310

PATIENT
  Age: 92 Year
  Sex: Female

DRUGS (3)
  1. MOXIFLOXACIN. [Suspect]
     Active Substance: MOXIFLOXACIN
     Indication: PNEUMONIA
     Dosage: MOXIFLOXACINO 400MG/24H 5 D?AS IV EN INGRESO + ORAL EN DOMICILIO
     Route: 042
     Dates: start: 20200927, end: 20201005
  2. LINEZOLID 2 MG/ML SOLUTION FOR INFUSION [Suspect]
     Active Substance: LINEZOLID
     Indication: RESPIRATORY TRACT INFECTION
     Dosage: LINEZOLID 600MG 300ML FRASCO CADA 12H IV
     Route: 042
     Dates: start: 20201006, end: 20201013
  3. MEROPENEM. [Suspect]
     Active Substance: MEROPENEM
     Indication: NOSOCOMIAL INFECTION
     Dosage: MEROPENEM 1G VIAL
     Route: 042
     Dates: start: 20201006, end: 20201013

REACTIONS (1)
  - Clostridium difficile colitis [Unknown]

NARRATIVE: CASE EVENT DATE: 20201007
